FAERS Safety Report 14626552 (Version 19)
Quarter: 2020Q4

REPORT INFORMATION
  Report Type: Report from Study
  Country: DE (occurrence: DE)
  Receive Date: 20180312
  Receipt Date: 20201130
  Transmission Date: 20210113
  Serious: Yes (Hospitalization, Other)
  Sender: FDA-Public Use
  Company Number: DE-BRISTOL-MYERS SQUIBB COMPANY-BMS-2017-023781

PATIENT
  Age: 63 Year
  Sex: Male

DRUGS (7)
  1. ORAMORPH SR SUSTAINED RELEASE [Concomitant]
     Active Substance: MORPHINE SULFATE
     Indication: NEOPLASM
     Dosage: 10 MG, UNK
     Route: 065
     Dates: start: 20170323
  2. REMERGIL [Concomitant]
     Active Substance: MIRTAZAPINE
     Indication: PROPHYLAXIS
     Dosage: 15 MG, UNK
     Route: 065
     Dates: start: 20170323
  3. NIVOLUMAB [Suspect]
     Active Substance: NIVOLUMAB
     Indication: NON-SMALL CELL LUNG CANCER
     Dosage: 3 MILLIGRAM/KILOGRAM, Q2WK
     Route: 042
     Dates: start: 20170315, end: 20180628
  4. PARACODIN [DIHYDROCODEINE] [Concomitant]
     Indication: PROPHYLAXIS
     Dosage: 20 GTT, AT NIGHT
     Route: 065
     Dates: start: 20170323
  5. FORTIMEL [Concomitant]
     Active Substance: DIETARY SUPPLEMENT
     Indication: PROPHYLAXIS
     Dosage: UNK UNK, TID
     Route: 065
     Dates: start: 20170323
  6. TRYASOL [Concomitant]
     Indication: PRODUCT USED FOR UNKNOWN INDICATION
     Dosage: 1 DF, QHS
     Dates: start: 20170919, end: 20171005
  7. OLIMEL [Concomitant]
     Active Substance: AMINO ACIDS\DEXTROSE\SOYBEAN OIL
     Indication: MALIGNANT NEOPLASM PROGRESSION
     Dosage: UNK, NUTRITION INFUSION
     Route: 065
     Dates: start: 20180319

REACTIONS (19)
  - Adverse event [Recovered/Resolved]
  - Cough [Not Recovered/Not Resolved]
  - Sleep disorder [Not Recovered/Not Resolved]
  - Infection [Recovered/Resolved]
  - Oedema [Recovered/Resolved]
  - Fatigue [Recovered/Resolved]
  - Aggression [Unknown]
  - Deafness unilateral [Not Recovered/Not Resolved]
  - Dyspnoea [Not Recovered/Not Resolved]
  - Nausea [Recovered/Resolved]
  - Constipation [Recovered/Resolved]
  - Vomiting [Recovered/Resolved]
  - Personality change [Recovered/Resolved]
  - Pain [Not Recovered/Not Resolved]
  - Malignant neoplasm progression [Not Recovered/Not Resolved]
  - General physical health deterioration [Not Recovered/Not Resolved]
  - Decreased appetite [Recovering/Resolving]
  - Vascular access site infection [Recovered/Resolved]
  - Anaemia [Recovered/Resolved]

NARRATIVE: CASE EVENT DATE: 20170316
